FAERS Safety Report 6801041-7 (Version None)
Quarter: 2010Q2

REPORT INFORMATION
  Report Type: 
  Country: None (occurrence: None)
  Receive Date: 20100629
  Receipt Date: 20100517
  Transmission Date: 20101027
  Serious: Yes (Congenital Anomaly)
  Sender: FDA-Public Use
  Company Number: GB-B.I. PHARMACEUTICALS,INC./RIDGEFIELD-2010-BP-05357BP

PATIENT

DRUGS (5)
  1. VIRAMUNE [Suspect]
     Indication: DRUG EXPOSURE DURING PREGNANCY
     Route: 064
  2. KALETRA [Concomitant]
     Indication: DRUG EXPOSURE DURING PREGNANCY
     Route: 064
  3. COMBIVIR [Concomitant]
     Indication: DRUG EXPOSURE DURING PREGNANCY
     Route: 064
  4. SUSTIVA [Concomitant]
     Indication: DRUG EXPOSURE DURING PREGNANCY
     Route: 064
  5. ZIAGEN [Concomitant]
     Indication: DRUG EXPOSURE DURING PREGNANCY
     Route: 064

REACTIONS (4)
  - CARDIAC MALPOSITION [None]
  - CONGENITAL DIAPHRAGMATIC ANOMALY [None]
  - DIAPHRAGMATIC APLASIA [None]
  - HEPATIC DISPLACEMENT [None]
